FAERS Safety Report 8614820-0 (Version None)
Quarter: 2012Q3

REPORT INFORMATION
  Report Type: 
  Country: None (occurrence: None)
  Receive Date: 20120823
  Receipt Date: 20120816
  Transmission Date: 20120928
  Serious: Yes (Hospitalization)
  Sender: FDA-Public Use
  Company Number: CH-SANOFI-AVENTIS-2012SA059314

PATIENT
  Age: 8 Month
  Sex: Female
  Weight: 5 kg

DRUGS (7)
  1. AUGMENTIN '500' [Suspect]
     Route: 042
     Dates: start: 20120608, end: 20120611
  2. CLONAZEPAM [Suspect]
     Route: 048
     Dates: start: 20120501
  3. MOTILIUM [Suspect]
     Route: 048
  4. GARAMYCIN [Suspect]
     Dosage: 1 PER 30 HOURS
     Route: 041
     Dates: start: 20120611, end: 20120615
  5. FLOXACILLIN SODIUM [Suspect]
     Route: 042
     Dates: start: 20120611, end: 20120626
  6. VALPROATE SODIUM [Suspect]
     Route: 048
     Dates: start: 20120101
  7. ENOXAPARIN SODIUM [Suspect]
     Route: 058
     Dates: start: 20120601

REACTIONS (1)
  - NEUTROPENIA [None]
